FAERS Safety Report 10045122 (Version 1)
Quarter: 2014Q1

REPORT INFORMATION
  Report Type: Spontaneous
  Country: JP (occurrence: JP)
  Receive Date: 20140328
  Receipt Date: 20140328
  Transmission Date: 20141002
  Serious: Yes (Other)
  Sender: FDA-Public Use
  Company Number: JP-ELI_LILLY_AND_COMPANY-JP201403007291

PATIENT
  Sex: Female

DRUGS (4)
  1. ALIMTA [Suspect]
     Indication: NON-SMALL CELL LUNG CANCER
     Route: 042
  2. CISPLATIN [Concomitant]
  3. FOLIC ACID [Concomitant]
  4. VITAMIN B12 [Concomitant]

REACTIONS (1)
  - Thyroid cancer [Unknown]
